FAERS Safety Report 5661201-8 (Version None)
Quarter: 2008Q1

REPORT INFORMATION
  Report Type: 
  Country: None (occurrence: None)
  Receive Date: 20080312
  Receipt Date: 20080228
  Transmission Date: 20080703
  Serious: Yes (Hospitalization)
  Sender: FDA-Public Use
  Company Number: GB-RANBAXY-2008RR-13407

PATIENT

DRUGS (5)
  1. CEFACLOR CAPSULES 250 MG [Suspect]
     Indication: LOWER RESPIRATORY TRACT INFECTION
     Dosage: 375 MG, QD
     Route: 048
     Dates: start: 20080131, end: 20080201
  2. ASPIRIN [Concomitant]
     Indication: ANGINA PECTORIS
     Dosage: 75 MG, UNK
     Route: 048
  3. CLOPIDOGREL [Concomitant]
     Indication: ANGINA PECTORIS
     Dosage: 75 MG, UNK
     Route: 048
  4. RAMIPRIL 5 MG CAPSULES [Concomitant]
     Indication: ANGINA PECTORIS
     Dosage: 5 MG, UNK
     Route: 048
  5. SIMVASTATIN [Concomitant]
     Indication: ANGINA PECTORIS
     Dosage: 40 MG, UNK
     Route: 048

REACTIONS (3)
  - DYSPNOEA [None]
  - ERYTHEMA [None]
  - HYPERHIDROSIS [None]
